FAERS Safety Report 25864436 (Version 1)
Quarter: 2025Q3

REPORT INFORMATION
  Report Type: Spontaneous
  Country: US (occurrence: US)
  Receive Date: 20250930
  Receipt Date: 20250930
  Transmission Date: 20251020
  Serious: Yes (Hospitalization, Other)
  Sender: RECKITT BENCKISER
  Company Number: US-INDIVIOR UK LIMITED-INDV-176649-2025

PATIENT
  Age: 39 Year
  Sex: Female

DRUGS (1)
  1. BUPRENORPHINE [Suspect]
     Active Substance: BUPRENORPHINE
     Indication: Pain
     Route: 065

REACTIONS (3)
  - Spinal cord abscess [Unknown]
  - Bacteraemia [Unknown]
  - Off label use [Unknown]
